FAERS Safety Report 4898445-9 (Version None)
Quarter: 2006Q1

REPORT INFORMATION
  Report Type: 
  Country: None (occurrence: None)
  Receive Date: 20060131
  Receipt Date: 20060131
  Transmission Date: 20060701
  Serious: Yes (Hospitalization)
  Sender: FDA-Public Use
  Company Number: None

PATIENT
  Age: 31 Year
  Sex: Male
  Weight: 78 kg

DRUGS (2)
  1. NITROUS OXIDE GAS BLUE TANK/CYLINDER NA [Suspect]
     Indication: CHOLECYSTECTOMY
     Dosage: INTRAOPERATIVE INTRAPERITONEAL
     Route: 033
     Dates: start: 20050721, end: 20050721
  2. CARBON DIOXIDE GAS GREY TANK/CYLINDER NA [Suspect]
     Indication: CHOLECYSTECTOMY
     Dosage: INTRAOPERATIVE INTRAPERITONEAL
     Route: 033
     Dates: start: 20050721, end: 20050721

REACTIONS (3)
  - MEDICATION ERROR [None]
  - PROCEDURAL COMPLICATION [None]
  - WRONG DRUG ADMINISTERED [None]
